FAERS Safety Report 6798241-1 (Version None)
Quarter: 2010Q2

REPORT INFORMATION
  Report Type: 
  Country: None (occurrence: None)
  Receive Date: 20100623
  Receipt Date: 20100608
  Transmission Date: 20101027
  Serious: Yes (Hospitalization)
  Sender: FDA-Public Use
  Company Number: 2010002349

PATIENT
  Age: 48 Year
  Sex: Female

DRUGS (3)
  1. TARCEVA [Suspect]
     Indication: LUNG NEOPLASM MALIGNANT
     Dosage: (150 MG, QD), ORAL
     Route: 048
     Dates: start: 20100419, end: 20100526
  2. OMEPRAZOLE [Concomitant]
  3. AMLODIPINE [Concomitant]

REACTIONS (2)
  - HAEMOPTYSIS [None]
  - RASH [None]
